FAERS Safety Report 8230420-9 (Version None)
Quarter: 2012Q1

REPORT INFORMATION
  Report Type: 
  Country: None (occurrence: None)
  Receive Date: 20120323
  Receipt Date: 20120314
  Transmission Date: 20120608
  Serious: Yes (Other)
  Sender: FDA-Public Use
  Company Number: JP-VERTEX PHARMACEUTICALS INC.-AE-2012-004045

PATIENT
  Age: 61 Year
  Sex: Female

DRUGS (10)
  1. PEG-INTRON [Concomitant]
     Dates: start: 20120215, end: 20120222
  2. PEG-INTRON [Concomitant]
     Indication: HEPATITIS C
     Dates: start: 20120201, end: 20120215
  3. TELAVIC (TELAPREVIR) [Suspect]
     Indication: HEPATITIS C
     Route: 048
     Dates: start: 20120201, end: 20120307
  4. REBETOL [Concomitant]
     Dates: start: 20120314
  5. PEG-INTRON [Concomitant]
     Dates: start: 20120222, end: 20120229
  6. PRIMPERAN TAB [Concomitant]
  7. REBETOL [Concomitant]
     Dates: start: 20120222, end: 20120307
  8. PEG-INTRON [Concomitant]
     Dates: start: 20120314
  9. REBETOL [Concomitant]
     Indication: HEPATITIS C
     Dates: start: 20120201, end: 20120222
  10. ACETAMINOPHEN [Concomitant]

REACTIONS (4)
  - PLATELET COUNT DECREASED [None]
  - HAEMOGLOBIN DECREASED [None]
  - ERYTHEMA MULTIFORME [None]
  - WHITE BLOOD CELL COUNT DECREASED [None]
